FAERS Safety Report 9759946 (Version 2)
Quarter: 2013Q4

REPORT INFORMATION
  Report Type: Spontaneous
  Country: US (occurrence: US)
  Receive Date: 20131216
  Receipt Date: 20131220
  Transmission Date: 20140711
  Serious: Yes (Hospitalization)
  Sender: FDA-Public Use
  Company Number: US-BAXTER-2013BAX050095

PATIENT
  Age: 65 Year
  Sex: Male

DRUGS (4)
  1. DIANEAL LOW CALCIUM [Suspect]
     Indication: PERITONEAL DIALYSIS
     Route: 033
     Dates: start: 201306, end: 20131130
  2. DIANEAL LOW CALCIUM [Suspect]
     Route: 033
     Dates: start: 201312
  3. DIANEAL LOW CALCIUM [Suspect]
     Indication: PERITONEAL DIALYSIS
     Route: 033
     Dates: start: 201306, end: 20131130
  4. DIANEAL LOW CALCIUM [Suspect]
     Route: 033
     Dates: start: 201312

REACTIONS (4)
  - Azotaemia [Recovering/Resolving]
  - Mental status changes [Recovering/Resolving]
  - Blood creatinine abnormal [Not Recovered/Not Resolved]
  - Fluid retention [Recovering/Resolving]
